FAERS Safety Report 23933698 (Version 1)
Quarter: 2024Q2

REPORT INFORMATION
  Report Type: Spontaneous
  Country: US (occurrence: None)
  Receive Date: 20240602
  Receipt Date: 20240602
  Transmission Date: 20240716
  Serious: Yes (Hospitalization)
  Sender: FDA-Public Use
  Company Number: None

PATIENT
  Age: 64 Year
  Sex: Female
  Weight: 66.4 kg

DRUGS (14)
  1. ESCITALOPRAM [Suspect]
     Active Substance: ESCITALOPRAM OXALATE
     Indication: Depression
     Dosage: 10  MG DAILY ORAL
     Route: 048
     Dates: start: 20200601, end: 20240602
  2. NORTRIPTYLINE [Suspect]
     Active Substance: NORTRIPTYLINE
     Dates: start: 20210605
  3. ROSUVASTATIN [Suspect]
     Active Substance: ROSUVASTATIN
     Dates: start: 20240529
  4. PROTONIX [Suspect]
     Active Substance: PANTOPRAZOLE SODIUM
     Dates: start: 20200605
  5. PROPRANOLOL HYDROCHLORIDE [Suspect]
     Active Substance: PROPRANOLOL HYDROCHLORIDE
     Dates: start: 20210609
  6. LEVOTHYROXINE [Suspect]
     Active Substance: LEVOTHYROXINE\LEVOTHYROXINE SODIUM
     Dates: start: 20210901
  7. ACETAMINOPHEN [Suspect]
     Active Substance: ACETAMINOPHEN
     Dates: start: 20230908
  8. SUMATRIPTAN [Suspect]
     Active Substance: SUMATRIPTAN
     Dates: start: 20240529, end: 20240601
  9. HYDROCORTISONE [Suspect]
     Active Substance: HYDROCORTISONE
     Dates: start: 20231005
  10. PREDNISONE [Suspect]
     Active Substance: PREDNISONE
     Dates: start: 20220902
  11. BENZONATATE [Suspect]
     Active Substance: BENZONATATE
     Dates: start: 20210604
  12. CALCIUM CARBONATE\CHOLECALCIFEROL [Suspect]
     Active Substance: CALCIUM CARBONATE\CHOLECALCIFEROL
     Dates: start: 20240409
  13. VITAMINS [Suspect]
     Active Substance: VITAMINS
  14. PANTOPRAZOLE [Concomitant]
     Active Substance: PANTOPRAZOLE

REACTIONS (5)
  - Hyponatraemia [None]
  - Dyspnoea [None]
  - Cough [None]
  - Anxiety [None]
  - Pyrexia [None]

NARRATIVE: CASE EVENT DATE: 20240601
